FAERS Safety Report 13277409 (Version 3)
Quarter: 2017Q1

REPORT INFORMATION
  Report Type: Spontaneous
  Country: US (occurrence: US)
  Receive Date: 20170228
  Receipt Date: 20170329
  Transmission Date: 20170428
  Serious: Yes (Hospitalization)
  Sender: FDA-Public Use
  Company Number: US-ELI_LILLY_AND_COMPANY-US201607009127

PATIENT
  Sex: Female

DRUGS (2)
  1. CYMBALTA [Suspect]
     Active Substance: DULOXETINE HYDROCHLORIDE
     Indication: PRODUCT USED FOR UNKNOWN INDICATION
     Dosage: UNK UNK, UNKNOWN
     Route: 065
     Dates: start: 2009
  2. CYMBALTA [Suspect]
     Active Substance: DULOXETINE HYDROCHLORIDE
     Dosage: 90 MG, UNKNOWN
     Route: 065
     Dates: start: 20101221, end: 201402

REACTIONS (17)
  - Paraesthesia [Unknown]
  - Irritability [Unknown]
  - Drug withdrawal syndrome [Unknown]
  - Affect lability [Unknown]
  - Fatigue [Unknown]
  - Tremor [Unknown]
  - Agitation [Unknown]
  - Drug ineffective [Unknown]
  - Dysphoria [Unknown]
  - Panic attack [Unknown]
  - Weight decreased [Unknown]
  - Lethargy [Unknown]
  - Dizziness [Unknown]
  - Insomnia [Unknown]
  - Anxiety [Unknown]
  - Decreased appetite [Unknown]
  - Vertigo [Unknown]
